FAERS Safety Report 7642979-0 (Version None)
Quarter: 2011Q3

REPORT INFORMATION
  Report Type: 
  Country: None (occurrence: None)
  Receive Date: 20110728
  Receipt Date: 20110720
  Transmission Date: 20111222
  Serious: Yes (Other)
  Sender: FDA-Public Use
  Company Number: US-ASTRAZENECA-2007UW27343

PATIENT
  Age: 12733 Day
  Sex: Male
  Weight: 156.5 kg

DRUGS (45)
  1. SEROQUEL [Suspect]
     Dosage: 100MG, 200MG, 300MG, 900MG
     Route: 048
     Dates: start: 20000101
  2. SEROQUEL [Suspect]
     Route: 048
     Dates: start: 20070515
  3. SEROQUEL [Suspect]
     Route: 048
     Dates: start: 20060707
  4. SEROQUEL [Suspect]
     Route: 048
     Dates: start: 20060707
  5. KLONOPIN [Concomitant]
     Dates: start: 20070101
  6. HBM [Concomitant]
  7. DEPAKOTE [Concomitant]
     Dosage: 500 TO 1500 MG
     Dates: start: 19991203
  8. TEMAZEPAM [Concomitant]
     Dates: start: 20040126
  9. XANAX [Concomitant]
     Indication: DEPRESSION
     Dosage: 1 TO 3 MG
     Dates: start: 20030326
  10. SEROQUEL [Suspect]
     Route: 048
     Dates: start: 20070515
  11. HALOPERIDOL [Concomitant]
     Dates: start: 20070108
  12. VALPROIC ACID [Concomitant]
     Dates: start: 20070205
  13. KLONOPIN [Concomitant]
     Dates: start: 20060707
  14. LEXAPRO [Concomitant]
     Dates: start: 20020101
  15. TRAZODONE HCL [Concomitant]
     Dates: start: 20000101
  16. TRAZODONE HCL [Concomitant]
     Dates: start: 20070420
  17. HYDROXYZINE HCL [Concomitant]
     Dates: start: 20070112
  18. SEROQUEL [Suspect]
     Dosage: 100MG, 200MG, 300MG, 900MG
     Route: 048
     Dates: start: 20000101
  19. CELEXA [Concomitant]
     Dates: start: 20070101
  20. BENZTROPINE MESYLATE [Concomitant]
     Dates: start: 20070205
  21. LYRICA [Concomitant]
     Dates: start: 20070503
  22. OXYCODONE HCL AND ACETAMINOPHEN [Concomitant]
     Dosage: 7.5/500MG
     Dates: start: 20070425
  23. SEROQUEL [Suspect]
     Route: 048
     Dates: start: 20060707
  24. LEXAPRO [Concomitant]
     Dosage: 10 TO 20 MG
     Dates: start: 20040126
  25. VICODIN [Concomitant]
     Indication: PAIN
     Dosage: 5/500, 7.5/500 MG
     Dates: start: 20070109
  26. SEROQUEL [Suspect]
     Indication: SCHIZOPHRENIA
     Dosage: 100 TO 900 MG
     Route: 048
     Dates: start: 19991206
  27. PROZAC [Concomitant]
  28. LOPID [Concomitant]
     Dates: start: 20071003
  29. SEROQUEL [Suspect]
     Indication: TINNITUS
     Dosage: 100 TO 900 MG
     Route: 048
     Dates: start: 19991206
  30. RISPERDAL [Concomitant]
     Indication: DEPRESSION
     Dates: start: 20020101
  31. RISPERDAL [Concomitant]
     Dates: start: 20030225
  32. THORAZINE [Concomitant]
  33. KLONOPIN [Concomitant]
     Dosage: 2 TO 4 MG
     Dates: start: 20060801
  34. DEPAKOTE [Concomitant]
     Indication: DEPRESSION
     Dates: start: 20060101
  35. LOVASTATIN [Concomitant]
     Dates: start: 20070205
  36. EFFEXOR XR [Concomitant]
     Indication: DEPRESSION
     Dates: start: 20000614
  37. SEROQUEL [Suspect]
     Indication: PARANOIA
     Dosage: 100 TO 900 MG
     Route: 048
     Dates: start: 19991206
  38. SEROQUEL [Suspect]
     Dosage: 100MG, 200MG, 300MG, 900MG
     Route: 048
     Dates: start: 20000101
  39. WELLBUTRIN SR [Concomitant]
     Dates: start: 20020101
  40. WELLBUTRIN SR [Concomitant]
     Dates: start: 20040430
  41. PAXIL [Concomitant]
     Dates: start: 20000101
  42. SEROQUEL [Suspect]
     Route: 048
     Dates: start: 20070515
  43. ABILIFY [Concomitant]
     Dosage: 15 TO 30 MG
     Dates: start: 20040126
  44. GEODON [Concomitant]
     Dates: start: 20020101
  45. CELEXA [Concomitant]
     Dosage: 40 TO 60 MG
     Route: 048
     Dates: start: 20060801

REACTIONS (12)
  - GALLBLADDER DISORDER [None]
  - SLEEP APNOEA SYNDROME [None]
  - DIABETES MELLITUS INADEQUATE CONTROL [None]
  - TYPE 2 DIABETES MELLITUS [None]
  - OBESITY [None]
  - CARPAL TUNNEL SYNDROME [None]
  - BORDERLINE PERSONALITY DISORDER [None]
  - DIABETES MELLITUS [None]
  - BACK PAIN [None]
  - BLOOD TRIGLYCERIDES INCREASED [None]
  - WEIGHT INCREASED [None]
  - TOOTH LOSS [None]
